FAERS Safety Report 5161707-4 (Version None)
Quarter: 2006Q4

REPORT INFORMATION
  Report Type: 
  Country: None (occurrence: None)
  Receive Date: 20061121
  Receipt Date: 20061110
  Transmission Date: 20070319
  Serious: Yes (Other)
  Sender: FDA-Public Use
  Company Number: 2005150005

PATIENT
  Age: 57 Year
  Sex: Female
  Weight: 76 kg

DRUGS (10)
  1. LIPITOR [Suspect]
     Indication: HYPERLIPIDAEMIA
     Dosage: 10 MG (10 MG, 1 IN 1 D), ORAL
     Route: 048
     Dates: end: 20050601
  2. LIPITOR [Suspect]
     Indication: MYOCARDIAL ISCHAEMIA
     Dosage: 10 MG (10 MG, 1 IN 1 D), ORAL
     Route: 048
     Dates: end: 20050601
  3. ASPIRIN [Concomitant]
  4. ATENOLOL [Concomitant]
  5. FUROSEMIDE [Concomitant]
  6. ISOSORBIDE MONONITRATE [Concomitant]
  7. FELODIPINE [Concomitant]
  8. .. [Concomitant]
  9. .. [Concomitant]
  10. .. [Concomitant]

REACTIONS (1)
  - AUTOIMMUNE HEPATITIS [None]
